FAERS Safety Report 19939967 (Version 6)
Quarter: 2025Q2

REPORT INFORMATION
  Report Type: Spontaneous
  Country: US (occurrence: US)
  Receive Date: 20211011
  Receipt Date: 20250618
  Transmission Date: 20250716
  Serious: Yes (Other)
  Sender: SANOFI AVENTIS
  Company Number: US-SA-SAC20211008000841

PATIENT
  Age: 71 Year
  Sex: Female

DRUGS (28)
  1. DUPIXENT [Suspect]
     Active Substance: DUPILUMAB
     Indication: Dermatitis atopic
     Route: 058
     Dates: start: 20201111, end: 20201111
  2. DUPIXENT [Suspect]
     Active Substance: DUPILUMAB
     Indication: Dyshidrotic eczema
     Dosage: 300 MG, QOW
     Route: 058
     Dates: start: 2020
  3. DUPIXENT [Suspect]
     Active Substance: DUPILUMAB
     Indication: Lichen sclerosus
     Dosage: 300 MG, QOW
     Route: 058
     Dates: start: 20220222
  4. RESTASIS [Concomitant]
     Active Substance: CYCLOSPORINE
  5. ZIOPTAN [Concomitant]
     Active Substance: TAFLUPROST
  6. ASPIRIN [Concomitant]
     Active Substance: ASPIRIN
  7. CYANOCOBALAMIN [Concomitant]
     Active Substance: CYANOCOBALAMIN
  8. FENOFIBRIC ACID [Concomitant]
     Active Substance: FENOFIBRIC ACID
  9. LEVOTHYROXINE [Concomitant]
     Active Substance: LEVOTHYROXINE
  10. SIMVASTATIN [Concomitant]
     Active Substance: SIMVASTATIN
  11. TACROLIMUS [Concomitant]
     Active Substance: TACROLIMUS
     Route: 061
  12. CLOBETASOL [Concomitant]
     Active Substance: CLOBETASOL
     Dosage: UNK, BID
     Route: 061
  13. LEXAPRO [Concomitant]
     Active Substance: ESCITALOPRAM OXALATE
  14. BETASERON [Concomitant]
     Active Substance: INTERFERON BETA-1B
  15. TRILIPIX [Concomitant]
     Active Substance: FENOFIBRIC ACID
  16. FISH OIL [Concomitant]
     Active Substance: FISH OIL
  17. CYANOCOBALAMIN [Concomitant]
     Active Substance: CYANOCOBALAMIN
  18. VITAMIN D2 [Concomitant]
     Active Substance: ERGOCALCIFEROL
  19. ESTRACE [Concomitant]
     Active Substance: ESTRADIOL
  20. COSOPT [Concomitant]
     Active Substance: DORZOLAMIDE HYDROCHLORIDE\TIMOLOL MALEATE
     Indication: Hypertension
  21. LOTEMAX [Concomitant]
     Active Substance: LOTEPREDNOL ETABONATE
     Indication: Keratitis
  22. LOTEMAX [Concomitant]
     Active Substance: LOTEPREDNOL ETABONATE
     Indication: Rosacea
  23. TIMOLOL [Concomitant]
     Active Substance: TIMOLOL
     Indication: Hypertension
  24. BRIMONIDINE [Concomitant]
     Active Substance: BRIMONIDINE TARTRATE
     Dosage: UNK, QOW
  25. AUGMENTIN [Concomitant]
     Active Substance: AMOXICILLIN\CLAVULANATE POTASSIUM
  26. DESONIDE [Concomitant]
     Active Substance: DESONIDE
  27. PROTOPIC [Concomitant]
     Active Substance: TACROLIMUS
     Dosage: UNK, BID
  28. TRIAMCINOLONE [Concomitant]
     Active Substance: TRIAMCINOLONE

REACTIONS (12)
  - Retinal detachment [Not Recovered/Not Resolved]
  - Herpes ophthalmic [Unknown]
  - Seborrhoeic keratosis [Unknown]
  - Melanocytic naevus [Unknown]
  - Eye infection viral [Unknown]
  - Haemangioma [Unknown]
  - Vision blurred [Unknown]
  - Papule [Unknown]
  - Dry eye [Unknown]
  - Rash pruritic [Unknown]
  - Product use in unapproved indication [Unknown]
  - Corneal transplant [Unknown]

NARRATIVE: CASE EVENT DATE: 20201111
